FAERS Safety Report 4545542-3 (Version None)
Quarter: 2005Q1

REPORT INFORMATION
  Report Type: 
  Country: None (occurrence: None)
  Receive Date: 20050105
  Receipt Date: 20041213
  Transmission Date: 20050727
  Serious: Yes (Life-Threatening, Hospitalization, Disabling)
  Sender: FDA-Public Use
  Company Number: US-MERCK-0412USA01601

PATIENT
  Age: 61 Year
  Sex: Male

DRUGS (10)
  1. VIOXX [Suspect]
     Indication: ARTHRITIS
     Route: 048
     Dates: start: 20001205, end: 20040601
  2. VIOXX [Suspect]
     Route: 048
  3. VIOXX [Suspect]
     Indication: PAIN
     Route: 048
     Dates: start: 20001205, end: 20040601
  4. VIOXX [Suspect]
     Route: 048
  5. SINGULAIR [Concomitant]
     Route: 048
  6. DOXEPIN HYDROCHLORIDE [Concomitant]
     Route: 065
  7. ALLEGRA [Concomitant]
     Route: 065
  8. ZYRTEC [Concomitant]
     Route: 065
  9. ACCOLATE [Concomitant]
     Route: 065
  10. HYDROXYZINE HYDROCHLORIDE [Concomitant]
     Route: 065

REACTIONS (4)
  - MEDICATION ERROR [None]
  - OVERDOSE [None]
  - TREATMENT NONCOMPLIANCE [None]
  - URTICARIA [None]
